FAERS Safety Report 5475692-9 (Version None)
Quarter: 2007Q4

REPORT INFORMATION
  Report Type: 
  Country: None (occurrence: None)
  Receive Date: 20071001
  Receipt Date: 20071001
  Transmission Date: 20080405
  Serious: Yes (Death)
  Sender: FDA-Public Use
  Company Number: None

PATIENT
  Age: 50 Year
  Sex: Male
  Weight: 123.832 kg

DRUGS (1)
  1. AVANDIA [Suspect]
     Indication: TYPE 2 DIABETES MELLITUS
     Dosage: 4MG  1 TABLET DAILY  PO
     Route: 048
     Dates: start: 20060728, end: 20070107

REACTIONS (2)
  - ANGINA PECTORIS [None]
  - TREATMENT NONCOMPLIANCE [None]
